FAERS Safety Report 19622777 (Version 2)
Quarter: 2021Q3

REPORT INFORMATION
  Report Type: Spontaneous
  Country: GB (occurrence: GB)
  Receive Date: 20210728
  Receipt Date: 20210924
  Transmission Date: 20211014
  Serious: Yes (Hospitalization, Other)
  Sender: FDA-Public Use
  Company Number: GB-ACCORD-223683

PATIENT
  Age: 54 Year
  Sex: Female

DRUGS (16)
  1. APREPITANT. [Concomitant]
     Active Substance: APREPITANT
     Indication: PREMEDICATION
     Dosage: 250 MILLIGRAM, ONCE BEFORE TREATMENT
     Route: 048
     Dates: start: 20170316
  2. TRASTUZUMAB. [Suspect]
     Active Substance: TRASTUZUMAB
     Indication: BREAST CANCER METASTATIC
     Dosage: 350 MILLIGRAM, Q3WK
     Route: 041
     Dates: start: 20171220
  3. TRASTUZUMAB/VORHYALURONIDASE ALFA [Suspect]
     Active Substance: HYALURONIDASE (HUMAN RECOMBINANT)\TRASTUZUMAB
     Indication: BREAST CANCER METASTATIC
     Dosage: 600 MILLIGRAM, Q3WK
     Route: 058
     Dates: start: 20170316, end: 20171130
  4. GRANISETRON [Concomitant]
     Active Substance: GRANISETRON
     Indication: PREMEDICATION
     Dosage: 1 MILLIGRAM, ONCE BEFORE TREATMENT
     Route: 042
     Dates: start: 20170316
  5. DEXAMETHASONE. [Concomitant]
     Active Substance: DEXAMETHASONE
     Dosage: 0.5 MILLIGRAM
     Route: 048
     Dates: start: 20190601
  6. NYSTATIN. [Concomitant]
     Active Substance: NYSTATIN
     Dosage: 1000 UNIT
     Route: 048
     Dates: start: 20190603
  7. FUSIDIC ACID [Concomitant]
     Active Substance: FUSIDIC ACID
     Dosage: 2 PERCENT, QD
     Route: 061
     Dates: start: 20170324, end: 20170328
  8. XGEVA [Suspect]
     Active Substance: DENOSUMAB
     Indication: BONE DISORDER
     Dosage: 120 MILLIGRAM, Q6WK
     Route: 058
     Dates: start: 20180111
  9. METOCLOPRAMIDE. [Concomitant]
     Active Substance: METOCLOPRAMIDE
     Indication: PROPHYLAXIS OF NAUSEA AND VOMITING
     Dosage: 30 MILLIGRAM
     Route: 048
     Dates: start: 20170316
  10. PERTUZUMAB. [Suspect]
     Active Substance: PERTUZUMAB
     Indication: BREAST CANCER METASTATIC
     Dosage: 420 MILLIGRAM, Q3WK
     Route: 042
     Dates: start: 20170406
  11. CHLORPHENAMINE/CHLORPHENAMINE MALEATE/CHLORPHENAMINE RESINATE/CHLORPHENAMINE TANNATE [Concomitant]
     Active Substance: CHLORPHENIRAMINE
     Indication: PREMEDICATION
     Dosage: 10 MILLIGRAM, ONCE BEFORE TREATMENT
     Route: 042
     Dates: start: 20170316
  12. HYDROCORTISONE. [Concomitant]
     Active Substance: HYDROCORTISONE
     Indication: PREMEDICATION
     Dosage: 1 PERCENT, ONCE BEFORE TREATMENT
     Route: 061
     Dates: start: 2015
  13. DALTEPARIN [Concomitant]
     Active Substance: DALTEPARIN
     Dosage: 2 PERCENT, QD
     Route: 061
     Dates: start: 20170327, end: 20170328
  14. PARACETAMOL [Concomitant]
     Active Substance: ACETAMINOPHEN
     Indication: PREMEDICATION
     Dosage: 1000 MILLIGRAM, ONCE BEFORE TREATMENT
     Route: 048
     Dates: start: 20170316
  15. DOCETAXEL. [Suspect]
     Active Substance: DOCETAXEL
     Indication: HER2 POSITIVE BREAST CANCER
     Dosage: 120 MILLIGRAM, Q3WK
     Route: 042
     Dates: start: 20170316, end: 20170629
  16. ONDANSETRON [Concomitant]
     Active Substance: ONDANSETRON
     Indication: PROPHYLAXIS OF NAUSEA AND VOMITING
     Dosage: 16 MILLIGRAM
     Route: 048
     Dates: start: 20170316

REACTIONS (11)
  - Haematemesis [Recovered/Resolved]
  - Alopecia [Recovered/Resolved]
  - Decreased appetite [Not Recovered/Not Resolved]
  - Hypernatraemia [Recovered/Resolved]
  - Fatigue [Recovered/Resolved]
  - Neutropenia [Recovered/Resolved]
  - Onychalgia [Recovered/Resolved]
  - Pain in jaw [Recovered/Resolved]
  - Nausea [Not Recovered/Not Resolved]
  - Malaise [Recovered/Resolved]
  - Candida infection [Recovered/Resolved]

NARRATIVE: CASE EVENT DATE: 20170324
